FAERS Safety Report 11805811 (Version 1)
Quarter: 2015Q4

REPORT INFORMATION
  Report Type: Other
  Country: DE (occurrence: DE)
  Receive Date: 20151207
  Receipt Date: 20151207
  Transmission Date: 20160305
  Serious: Yes (Other)
  Sender: FDA-Public Use
  Company Number: DE-LUPIN PHARMACEUTICALS INC.-E2B_00004555

PATIENT
  Age: 28 Year
  Sex: Male

DRUGS (7)
  1. CLOZAPINE. [Concomitant]
     Active Substance: CLOZAPINE
     Indication: PRODUCT USED FOR UNKNOWN INDICATION
     Dosage: 75 MG
     Route: 048
     Dates: start: 20140501
  2. ZIPRASIDONE. [Suspect]
     Active Substance: ZIPRASIDONE
     Indication: PRODUCT USED FOR UNKNOWN INDICATION
     Dosage: 40 MG
     Route: 048
     Dates: start: 20141127, end: 20141201
  3. RAMIPRIL. [Concomitant]
     Active Substance: RAMIPRIL
     Indication: PRODUCT USED FOR UNKNOWN INDICATION
     Route: 048
     Dates: start: 20141125, end: 20141216
  4. ZIPRASIDONE. [Suspect]
     Active Substance: ZIPRASIDONE
     Dosage: 120 MG
     Route: 048
     Dates: start: 20141208, end: 20141211
  5. METOPROLOL [Concomitant]
     Active Substance: METOPROLOL
     Indication: PRODUCT USED FOR UNKNOWN INDICATION
     Route: 048
     Dates: start: 20141125, end: 20141216
  6. ZIPRASIDONE. [Suspect]
     Active Substance: ZIPRASIDONE
     Dosage: 80 MG
     Route: 048
     Dates: start: 20141202, end: 20141207
  7. ZIPRASIDONE. [Suspect]
     Active Substance: ZIPRASIDONE
     Dosage: 160 MG
     Route: 048
     Dates: start: 20141212, end: 20141216

REACTIONS (1)
  - Bruxism [Recovered/Resolved]

NARRATIVE: CASE EVENT DATE: 20141130
